FAERS Safety Report 10735336 (Version 1)
Quarter: 2015Q1

REPORT INFORMATION
  Report Type: Spontaneous
  Country: US (occurrence: US)
  Receive Date: 20150125
  Receipt Date: 20150125
  Transmission Date: 20150721
  Serious: Yes (Life-Threatening, Hospitalization)
  Sender: FDA-Public Use
  Company Number: US-JNJFOC-20150107124

PATIENT
  Age: 25 Year
  Sex: Female

DRUGS (3)
  1. NON THERAPEUTIC PRODUCT [Suspect]
     Active Substance: UNSPECIFIED INGREDIENT
     Indication: SUICIDE ATTEMPT
     Route: 065
  2. APAP [Suspect]
     Active Substance: ACETAMINOPHEN
     Route: 048
  3. APAP [Suspect]
     Active Substance: ACETAMINOPHEN
     Indication: SUICIDE ATTEMPT
     Route: 048
     Dates: start: 200507

REACTIONS (6)
  - Renal failure [Recovering/Resolving]
  - Liver function test abnormal [Recovering/Resolving]
  - Foetal death [Not Recovered/Not Resolved]
  - Exposure during pregnancy [Unknown]
  - Hepatotoxicity [Recovering/Resolving]
  - Intentional overdose [Unknown]
